FAERS Safety Report 4491002-8 (Version None)
Quarter: 2004Q4

REPORT INFORMATION
  Report Type: 
  Country: None (occurrence: None)
  Receive Date: 20041027
  Receipt Date: 20041011
  Transmission Date: 20050328
  Serious: Yes (Death)
  Sender: FDA-Public Use
  Company Number: L04-SWE-06630-03

PATIENT
  Age: 76 Year
  Sex: Male

DRUGS (4)
  1. CITALOPRAM [Suspect]
  2. PROPOXYPHENE [Concomitant]
  3. NORPROPOXYPHENE [Concomitant]
  4. ACETAMINOPHEN [Concomitant]

REACTIONS (3)
  - ACCIDENT [None]
  - DROWNING [None]
  - LABORATORY TEST ABNORMAL [None]
